FAERS Safety Report 19258156 (Version 1)
Quarter: 2021Q2

REPORT INFORMATION
  Report Type: Spontaneous
  Country: US (occurrence: US)
  Receive Date: 20210514
  Receipt Date: 20210514
  Transmission Date: 20210717
  Serious: Yes (Other)
  Sender: FDA-Public Use
  Company Number: US-ASTRAZENECA-2021A424997

PATIENT
  Sex: Female
  Weight: 75.8 kg

DRUGS (1)
  1. BRILINTA [Suspect]
     Active Substance: TICAGRELOR
     Route: 048

REACTIONS (5)
  - Fall [Unknown]
  - Dyspnoea [Recovered/Resolved]
  - Upper limb fracture [Unknown]
  - Hand fracture [Unknown]
  - Haemorrhage [Unknown]
